FAERS Safety Report 7429746-8 (Version None)
Quarter: 2011Q2

REPORT INFORMATION
  Report Type: 
  Country: None (occurrence: None)
  Receive Date: 20110421
  Receipt Date: 20110418
  Transmission Date: 20111010
  Serious: Yes (Other)
  Sender: FDA-Public Use
  Company Number: JP-PFIZER INC-2011023443

PATIENT
  Age: 72 Year
  Sex: Male
  Weight: 50 kg

DRUGS (3)
  1. ZYVOX [Suspect]
     Indication: GASTROENTERITIS STAPHYLOCOCCAL
     Dosage: 600 MG, 1X/DAY
     Route: 041
     Dates: start: 20110201
  2. AMLODIN [Concomitant]
     Indication: HYPERTENSION
     Dosage: 5 MG, 1X/DAY
     Route: 048
  3. VANCOMYCIN [Concomitant]
     Indication: GASTROENTERITIS STAPHYLOCOCCAL
     Dosage: 125 MG, 4X/DAY
     Route: 048

REACTIONS (1)
  - ATRIAL FIBRILLATION [None]
